FAERS Safety Report 10222207 (Version 2)
Quarter: 2014Q2

REPORT INFORMATION
  Report Type: Spontaneous
  Country: TH (occurrence: TH)
  Receive Date: 20140606
  Receipt Date: 20140619
  Transmission Date: 20141212
  Serious: Yes (Death)
  Sender: FDA-Public Use
  Company Number: TH-OTSUKA-US-2014-11153

PATIENT
  Age: 12 Year
  Sex: Female

DRUGS (4)
  1. BUSULFEX [Suspect]
     Indication: STEM CELL TRANSPLANT
     Dosage: 130 MG/M2, QD X 4 DAYS (DAY 9 TO DAY 6)
     Route: 042
  2. FLUDARABINE PHOSPHATE [Suspect]
     Indication: STEM CELL TRANSPLANT
     Dosage: 35 MG/M2, QD X 6 DAYS
     Route: 042
  3. ATG RABBIT [Suspect]
     Indication: STEM CELL TRANSPLANT
     Dosage: 1.5 MG/KG, QD
     Route: 065
  4. DEXAMETHASONE [Suspect]
     Indication: IMMUNOSUPPRESSION
     Route: 065

REACTIONS (1)
  - Aspergillus infection [Fatal]
